FAERS Safety Report 7750146-5 (Version None)
Quarter: 2011Q3

REPORT INFORMATION
  Report Type: 
  Country: None (occurrence: None)
  Receive Date: 20110914
  Receipt Date: 20110908
  Transmission Date: 20111222
  Serious: Yes (Other)
  Sender: FDA-Public Use
  Company Number: JP-PFIZER INC-2011210055

PATIENT
  Sex: Female

DRUGS (1)
  1. XALATAN [Suspect]
     Indication: GLAUCOMA
     Dosage: BOTH EYES ONCE EVERY NIGHT AT BEDTIME
     Route: 047
     Dates: start: 20110701

REACTIONS (5)
  - EYE DISORDER [None]
  - ANTERIOR CHAMBER DISORDER [None]
  - EYES SUNKEN [None]
  - NERVOUS SYSTEM DISORDER [None]
  - OCULAR ICTERUS [None]
